FAERS Safety Report 9778769 (Version 1)
Quarter: 2013Q4

REPORT INFORMATION
  Report Type: Spontaneous
  Country: FR (occurrence: FR)
  Receive Date: 20131223
  Receipt Date: 20131223
  Transmission Date: 20140711
  Serious: Yes (Hospitalization)
  Sender: FDA-Public Use
  Company Number: FR-009507513-1312FRA008613

PATIENT
  Age: 41 Year
  Sex: Female

DRUGS (5)
  1. VICTRELIS [Suspect]
     Indication: CHRONIC HEPATITIS C
     Dosage: 4 DF, TID
     Route: 048
     Dates: start: 20130330, end: 20131001
  2. PEGASYS [Suspect]
     Indication: CHRONIC HEPATITIS C
     Dosage: 180 MICROGRAM, QD
     Route: 058
     Dates: start: 20130330, end: 20131001
  3. COPEGUS [Suspect]
     Indication: CHRONIC HEPATITIS C
     Dosage: 3 DF, BID
     Route: 048
     Dates: start: 20130330, end: 20131001
  4. NPLATE [Concomitant]
     Indication: IMMUNE THROMBOCYTOPENIC PURPURA
     Dosage: UNK
  5. CORTANCYL [Concomitant]
     Indication: IMMUNE THROMBOCYTOPENIC PURPURA
     Dosage: 1 MG, QD

REACTIONS (1)
  - Erythema nodosum [Recovered/Resolved]
